FAERS Safety Report 9660546 (Version 1)
Quarter: 2013Q4

REPORT INFORMATION
  Report Type: Other
  Country: GB (occurrence: GB)
  Receive Date: 20131031
  Receipt Date: 20131031
  Transmission Date: 20140711
  Serious: Yes (Hospitalization)
  Sender: FDA-Public Use
  Company Number: GB-TARO PHARMACEUTICALS U.S.A., INC-2013SUN04906

PATIENT
  Age: 94 Year
  Sex: Male

DRUGS (13)
  1. WARFARIN [Suspect]
     Indication: PRODUCT USED FOR UNKNOWN INDICATION
     Dosage: 3 MG, UNK
     Route: 048
     Dates: end: 20131007
  2. ALENDRONIC ACID [Suspect]
     Indication: PRODUCT USED FOR UNKNOWN INDICATION
     Dosage: 70 MG, WEEKLY
     Route: 048
  3. ATENOLOL [Concomitant]
  4. BUMETANIDE [Concomitant]
  5. CALCIUM CARBONATE [Concomitant]
  6. CO-CODAMOL [Concomitant]
  7. FERROUS FUMARATE [Concomitant]
  8. GTN [Concomitant]
  9. LACTULOSE [Concomitant]
  10. OMEPRAZOLE [Concomitant]
     Dosage: 10 MG, UNK
  11. OMEPRAZOLE [Concomitant]
     Dosage: 20 MG, UNK
  12. RAMIPRIL [Concomitant]
  13. SIMVASTATIN [Concomitant]

REACTIONS (5)
  - Hiatus hernia [Unknown]
  - Varices oesophageal [Unknown]
  - Gastrointestinal haemorrhage [Recovering/Resolving]
  - Haematemesis [Unknown]
  - Melaena [Unknown]
